FAERS Safety Report 7621679-7 (Version None)
Quarter: 2011Q3

REPORT INFORMATION
  Report Type: 
  Country: None (occurrence: None)
  Receive Date: 20110719
  Receipt Date: 20110715
  Transmission Date: 20111222
  Serious: Yes (Life-Threatening)
  Sender: FDA-Public Use
  Company Number: CN-ASTRAZENECA-2011SE42084

PATIENT
  Age: 19 Year
  Sex: Male

DRUGS (2)
  1. BUPIVACAINE HCL [Concomitant]
  2. LIDOCAINE [Suspect]
     Indication: LOCAL ANAESTHESIA
     Route: 042

REACTIONS (1)
  - ACUTE PULMONARY OEDEMA [None]
